FAERS Safety Report 10560236 (Version 1)
Quarter: 2014Q4

REPORT INFORMATION
  Report Type: Spontaneous
  Country: US (occurrence: None)
  Receive Date: 20141031
  Receipt Date: 20141031
  Transmission Date: 20150529
  Serious: Yes (Life-Threatening)
  Sender: FDA-Public Use
  Company Number: None

PATIENT
  Age: 85 Year
  Sex: Male
  Weight: 67 kg

DRUGS (1)
  1. MOXIFLOXACIN HCL [Suspect]
     Active Substance: MOXIFLOXACIN
     Dosage: 1 DAY 400 MG  QD INTRAVENOUS
     Route: 042

REACTIONS (8)
  - Hypersensitivity [None]
  - Anaphylactic reaction [None]
  - Wheezing [None]
  - Cyanosis [None]
  - Dyspnoea [None]
  - Body temperature increased [None]
  - Chills [None]
  - Confusional state [None]

NARRATIVE: CASE EVENT DATE: 20140424
